FAERS Safety Report 6671111-5 (Version None)
Quarter: 2010Q2

REPORT INFORMATION
  Report Type: 
  Country: None (occurrence: None)
  Receive Date: 20100407
  Receipt Date: 20100326
  Transmission Date: 20101027
  Serious: Yes (Other)
  Sender: FDA-Public Use
  Company Number: PHHY2010JP00846

PATIENT
  Sex: Female
  Weight: 72 kg

DRUGS (3)
  1. DIOVAN HCT [Suspect]
     Indication: HYPERTENSION
     Dosage: ONE TABLET (80/12.5 MG) DAILY
     Route: 048
     Dates: start: 20090326, end: 20091127
  2. ADALAT [Concomitant]
     Dosage: UNK
     Route: 048
     Dates: start: 20090206
  3. CARVEDILOL [Concomitant]
     Dosage: UNK
     Route: 048
     Dates: start: 20090206

REACTIONS (5)
  - ASTHENIA [None]
  - FALL [None]
  - GAIT DISTURBANCE [None]
  - HYPOKALAEMIA [None]
  - PARALYSIS [None]
